FAERS Safety Report 9184113 (Version 1)
Quarter: 2013Q1

REPORT INFORMATION
  Report Type: Spontaneous
  Country: US (occurrence: US)
  Receive Date: 20130322
  Receipt Date: 20130322
  Transmission Date: 20140127
  Serious: Yes (Other)
  Sender: FDA-Public Use
  Company Number: US-BRISTOL-MYERS SQUIBB COMPANY-17320334

PATIENT
  Age: 69 Year
  Sex: Male
  Weight: 88.43 kg

DRUGS (1)
  1. ERBITUX [Suspect]
     Indication: COLON CANCER
     Dosage: INTER FOR 3 WEEKS
     Dates: start: 201208

REACTIONS (6)
  - Blood magnesium decreased [Unknown]
  - Fungal infection [Unknown]
  - Weight decreased [Unknown]
  - Haematoma [Unknown]
  - Acne [Unknown]
  - Rash [Unknown]
